FAERS Safety Report 25783878 (Version 1)
Quarter: 2025Q3

REPORT INFORMATION
  Report Type: Spontaneous
  Country: CA (occurrence: CA)
  Receive Date: 20250910
  Receipt Date: 20250910
  Transmission Date: 20251021
  Serious: Yes (Other)
  Sender: ACCORD
  Company Number: None

PATIENT
  Age: 38 Year
  Sex: Female

DRUGS (1)
  1. METHOTREXATE SODIUM [Suspect]
     Active Substance: METHOTREXATE SODIUM
     Indication: Crohn^s disease
     Route: 065

REACTIONS (6)
  - Pulmonary embolism [Unknown]
  - Nausea [Unknown]
  - Small intestinal obstruction [Unknown]
  - Vomiting [Unknown]
  - Condition aggravated [Unknown]
  - Off label use [Unknown]
